FAERS Safety Report 20052886 (Version 2)
Quarter: 2021Q4

REPORT INFORMATION
  Report Type: Spontaneous
  Country: RO (occurrence: RO)
  Receive Date: 20211110
  Receipt Date: 20211129
  Transmission Date: 20220303
  Serious: Yes (Other)
  Sender: FDA-Public Use
  Company Number: RO-ASTELLAS-2021US042654

PATIENT
  Age: 71 Year
  Sex: Male

DRUGS (2)
  1. ENZALUTAMIDE [Suspect]
     Active Substance: ENZALUTAMIDE
     Indication: Hormone-refractory prostate cancer
     Route: 048
     Dates: start: 202006
  2. TRIPTORELIN [Concomitant]
     Active Substance: TRIPTORELIN
     Indication: Product used for unknown indication
     Dosage: UNK UNK, 11,25 MG /3 MONTHS
     Route: 065
     Dates: start: 201804

REACTIONS (2)
  - Malignant neoplasm progression [Not Recovered/Not Resolved]
  - Prostatic specific antigen increased [Not Recovered/Not Resolved]

NARRATIVE: CASE EVENT DATE: 20201101
